FAERS Safety Report 8761614 (Version 2)
Quarter: 2012Q4

REPORT INFORMATION
  Report Type: Spontaneous
  Country: US (occurrence: None)
  Receive Date: 20120821
  Receipt Date: 20120913
  Transmission Date: 20130627
  Serious: Yes (Other)
  Sender: FDA-Public Use
  Company Number: JPI-P-024126

PATIENT
  Age: 50 Year
  Sex: Female
  Weight: 104.33 kg

DRUGS (8)
  1. XYREM [Suspect]
     Dosage: (8 gm first dose/6 gm second dose)
     Route: 048
     Dates: start: 20090519
  2. XYREM [Suspect]
     Dosage: 8 gm first dose/ 6 gm second dose
     Route: 048
  3. ARMODAFINIL [Concomitant]
     Indication: INSOMNIA
  4. DULOXETINE HYDROCHLORIDE [Concomitant]
  5. ATOMOXETINE HYDROCHLORIDE [Concomitant]
  6. VITAMIN B [Concomitant]
  7. CLONAZEPAM [Concomitant]
  8. BACLOFEN [Concomitant]

REACTIONS (7)
  - Head injury [None]
  - Concussion [None]
  - Anger [None]
  - Convulsion [None]
  - Fall [None]
  - Memory impairment [None]
  - Tongue disorder [None]
